FAERS Safety Report 20945152 (Version 1)
Quarter: 2022Q2

REPORT INFORMATION
  Report Type: Report from Study
  Country: CR (occurrence: CR)
  Receive Date: 20220610
  Receipt Date: 20220610
  Transmission Date: 20220720
  Serious: Yes (Life-Threatening)
  Sender: FDA-Public Use
  Company Number: CR-NOVARTISPH-NVSC2022CR133495

PATIENT
  Sex: Female

DRUGS (2)
  1. SECUKINUMAB [Suspect]
     Active Substance: SECUKINUMAB
     Indication: Psoriatic arthropathy
     Dosage: 300 MG, QMO
     Route: 058
  2. SECUKINUMAB [Suspect]
     Active Substance: SECUKINUMAB
     Dosage: 150 MG, QMO
     Route: 058
     Dates: start: 20181212

REACTIONS (9)
  - Depression [Unknown]
  - Psoriasis [Unknown]
  - Urticaria [Unknown]
  - Pain [Unknown]
  - Inflammation [Unknown]
  - Spondylitis [Unknown]
  - Bone pain [Unknown]
  - Spinal disorder [Unknown]
  - Musculoskeletal discomfort [Unknown]
